FAERS Safety Report 4783920-8 (Version None)
Quarter: 2005Q3

REPORT INFORMATION
  Report Type: 
  Country: None (occurrence: None)
  Receive Date: 20050929
  Receipt Date: 20050707
  Transmission Date: 20060218
  Serious: Yes (Life-Threatening, Hospitalization)
  Sender: FDA-Public Use
  Company Number: US-MERCK-0507USA00729

PATIENT
  Age: 75 Year
  Sex: Female
  Weight: 71 kg

DRUGS (10)
  1. VYTORIN [Suspect]
     Indication: BLOOD CHOLESTEROL INCREASED
     Route: 048
     Dates: start: 20050520, end: 20050701
  2. AMIODARONE MSD [Concomitant]
     Route: 048
  3. GLYBURIDE AND METFORMIN HYDROCHLORIDE [Concomitant]
     Route: 065
  4. DIOVAN HCT [Concomitant]
     Route: 065
  5. ASPIRIN [Concomitant]
     Route: 065
  6. ATENOLOL [Concomitant]
     Route: 065
  7. ISOSORBIDE [Concomitant]
     Route: 065
  8. NORVASC [Concomitant]
     Route: 065
     Dates: end: 20050626
  9. NORVASC [Concomitant]
     Route: 065
     Dates: start: 20050627
  10. WARFARIN [Concomitant]
     Route: 065

REACTIONS (3)
  - HEPATIC FAILURE [None]
  - RENAL FAILURE [None]
  - RHABDOMYOLYSIS [None]
